FAERS Safety Report 12171825 (Version 1)
Quarter: 2016Q1

REPORT INFORMATION
  Report Type: Spontaneous
  Country: US (occurrence: US)
  Receive Date: 20160311
  Receipt Date: 20160311
  Transmission Date: 20160526
  Serious: No
  Sender: FDA-Public Use
  Company Number: US-PERRIGO-15US009683

PATIENT
  Age: 43 Year
  Sex: Female
  Weight: 62.13 kg

DRUGS (2)
  1. IBUPROFEN. [Suspect]
     Active Substance: IBUPROFEN
     Indication: HEADACHE
     Dosage: 200 MG, SINGLE
     Route: 048
     Dates: start: 20150915, end: 20150915
  2. NEXIUM [Concomitant]
     Active Substance: ESOMEPRAZOLE MAGNESIUM
     Indication: IRRITABLE BOWEL SYNDROME
     Dosage: UNK
     Route: 048

REACTIONS (2)
  - Nausea [Unknown]
  - Drug administered to patient of inappropriate age [Recovered/Resolved]

NARRATIVE: CASE EVENT DATE: 20150915
